FAERS Safety Report 17802592 (Version 1)
Quarter: 2020Q2

REPORT INFORMATION
  Report Type: Spontaneous
  Country: TW (occurrence: TW)
  Receive Date: 20200519
  Receipt Date: 20200519
  Transmission Date: 20200714
  Serious: Yes (Death, Other)
  Sender: FDA-Public Use
  Company Number: TW-UNICHEM PHARMACEUTICALS (USA) INC-UCM202005-000606

PATIENT

DRUGS (1)
  1. DIVALPROEX SODIUM. [Suspect]
     Active Substance: DIVALPROEX SODIUM
     Indication: SUICIDE ATTEMPT
     Dosage: UNKNOWN

REACTIONS (5)
  - Toxicity to various agents [Fatal]
  - Suicide attempt [Unknown]
  - Hypoglycaemia [Unknown]
  - Overdose [Unknown]
  - Mental status changes [Unknown]
